FAERS Safety Report 14223724 (Version 2)
Quarter: 2018Q4

REPORT INFORMATION
  Report Type: Spontaneous
  Country: US (occurrence: US)
  Receive Date: 20171124
  Receipt Date: 20181113
  Transmission Date: 20190204
  Serious: No
  Sender: FDA-Public Use
  Company Number: US-BRISTOL-MYERS SQUIBB COMPANY-BMS-2017-106639

PATIENT
  Sex: Female

DRUGS (1)
  1. SPRYCEL [Suspect]
     Active Substance: DASATINIB
     Indication: CHRONIC MYELOID LEUKAEMIA
     Dosage: 50 MG, QOD
     Route: 048
     Dates: start: 20161221

REACTIONS (7)
  - Eye pruritus [Unknown]
  - Off label use [Unknown]
  - Eye swelling [Unknown]
  - Pruritus [Unknown]
  - Migraine [Unknown]
  - Cognitive disorder [Unknown]
  - Headache [Unknown]
